FAERS Safety Report 7077180-5 (Version None)
Quarter: 2010Q4

REPORT INFORMATION
  Report Type: 
  Country: None (occurrence: None)
  Receive Date: 20101101
  Receipt Date: 20101029
  Transmission Date: 20110411
  Serious: Yes (Hospitalization)
  Sender: FDA-Public Use
  Company Number: B0681425A

PATIENT
  Sex: Female

DRUGS (8)
  1. DEROXAT [Suspect]
     Indication: DEPRESSION
     Dosage: 20MG PER DAY
     Route: 048
     Dates: end: 20100507
  2. NOROXIN [Suspect]
     Dosage: 400MG TWICE PER DAY
     Route: 048
     Dates: start: 20100504, end: 20100508
  3. INIPOMP [Suspect]
     Dosage: 40MG PER DAY
     Route: 048
     Dates: end: 20100507
  4. EXELON [Suspect]
     Indication: COGNITIVE DISORDER
     Dosage: 4.5MG TWICE PER DAY
     Route: 048
     Dates: end: 20100508
  5. GLUCOPHAGE [Suspect]
     Dosage: 850MG THREE TIMES PER DAY
     Route: 048
  6. DIAMICRON [Suspect]
     Dosage: 30MG PER DAY
     Route: 048
  7. IMOVANE [Suspect]
     Dosage: 7.5MG PER DAY
     Route: 048
     Dates: start: 20100430
  8. DEPAKINE CHRONO [Suspect]
     Indication: EPILEPSY
     Dosage: 500MG TWICE PER DAY
     Route: 048

REACTIONS (2)
  - EPILEPSY [None]
  - HYPONATRAEMIA [None]
